FAERS Safety Report 9935164 (Version 3)
Quarter: 2014Q2

REPORT INFORMATION
  Report Type: Spontaneous
  Country: JP (occurrence: JP)
  Receive Date: 20140228
  Receipt Date: 20140407
  Transmission Date: 20141212
  Serious: Yes (Other)
  Sender: FDA-Public Use
  Company Number: JP-PFIZER INC-2014054173

PATIENT
  Age: 79 Year
  Sex: Male
  Weight: 61 kg

DRUGS (3)
  1. DETRUSITOL [Suspect]
     Indication: HYPERTONIC BLADDER
     Dosage: 4 MG, 1X/DAY
     Route: 048
     Dates: start: 20131127, end: 20140115
  2. NORVASC [Suspect]
     Indication: HYPERTENSION
     Dosage: UNK, SINCE 10 YEARS AGO
     Route: 048
  3. LEUPLIN [Concomitant]
     Indication: PROSTATE CANCER
     Dosage: 11.25 G, CYCLIC
     Route: 058

REACTIONS (1)
  - Renal failure [Not Recovered/Not Resolved]
